FAERS Safety Report 21146412 (Version 1)
Quarter: 2022Q3

REPORT INFORMATION
  Report Type: Spontaneous
  Country: US (occurrence: US)
  Receive Date: 20220729
  Receipt Date: 20220729
  Transmission Date: 20221027
  Serious: Yes (Disabling)
  Sender: FDA-Public Use
  Company Number: US-Atnahs Limited-ATNAHS20220706330

PATIENT
  Age: 66 Year
  Sex: Male
  Weight: 72.64 kg

DRUGS (3)
  1. VALIUM [Suspect]
     Active Substance: DIAZEPAM
     Indication: Sleep disorder
     Route: 065
  2. OCREVUS [Suspect]
     Active Substance: OCRELIZUMAB
     Indication: Primary progressive multiple sclerosis
     Dosage: THE DRUG WAS ADMINISTERED FROM AN UNKNOWN DATE 2 YEAR PRIOR TO THE REPORT, SINCE 2017 OR 2018, AND T
     Route: 042
  3. ELIQUIS [Concomitant]
     Active Substance: APIXABAN
     Indication: Anticoagulant therapy

REACTIONS (4)
  - Deep vein thrombosis [Unknown]
  - Immunodeficiency [Unknown]
  - COVID-19 [Unknown]
  - Off label use [Unknown]

NARRATIVE: CASE EVENT DATE: 20201101
